FAERS Safety Report 5989158-0 (Version None)
Quarter: 2008Q4

REPORT INFORMATION
  Report Type: 
  Country: None (occurrence: None)
  Receive Date: 20081210
  Receipt Date: 20081208
  Transmission Date: 20090506
  Serious: Yes (Other)
  Sender: FDA-Public Use
  Company Number: US-KINGPHARMUSA00001-K200801383

PATIENT
  Age: 45 Year
  Sex: Female

DRUGS (20)
  1. ALTACE [Suspect]
     Dosage: 5 MG, QD
     Route: 048
  2. DECORTIN H [Concomitant]
     Indication: SYSTEMIC LUPUS ERYTHEMATOSUS
     Dosage: 10 MG, UNK
     Route: 048
     Dates: start: 20040101
  3. IMUREK                             /00001501/ [Concomitant]
     Dosage: 150 MG, UNK
     Route: 048
  4. MARCUMAR [Concomitant]
  5. CONCOR                             /00802601/ [Concomitant]
     Dosage: 10 MG, UNK
     Route: 048
  6. TAMBOCOR [Concomitant]
     Dosage: 200 MG, UNK
     Route: 048
  7. CORANGIN                           /00586303/ [Concomitant]
     Dosage: 40 MG, UNK
     Route: 048
  8. PANTOPRAZOLE SODIUM [Concomitant]
     Dosage: 80 MG, UNK
     Route: 048
  9. SIMVASTATIN [Concomitant]
     Dosage: 20 MG, UNK
  10. SYMBICORT [Concomitant]
     Dosage: 320/9
  11. ARCOXIA [Concomitant]
     Dosage: 90 MG, UNK
     Route: 048
  12. SULTANOL                           /00139501/ [Concomitant]
  13. ATROVENT [Concomitant]
  14. NITROLINGUAL PUMPSPRAY [Concomitant]
     Dosage: UNK
  15. TROMCARDIN K 120 [Concomitant]
     Route: 048
  16. IDEOS                              /00944201/ [Concomitant]
     Route: 048
  17. TEPILTA                            /00115701/ [Concomitant]
  18. SPIRIVA [Concomitant]
  19. HYLO-COMOD                         /00567502/ [Concomitant]
  20. CELESTAN                           /00008502/ [Concomitant]
     Dosage: UNK

REACTIONS (4)
  - ARTHRALGIA [None]
  - IMMOBILE [None]
  - INFLUENZA LIKE ILLNESS [None]
  - SYSTEMIC LUPUS ERYTHEMATOSUS [None]
